FAERS Safety Report 10211509 (Version 1)
Quarter: 2014Q2

REPORT INFORMATION
  Report Type: Spontaneous
  Country: JP (occurrence: JP)
  Receive Date: 20140602
  Receipt Date: 20140602
  Transmission Date: 20141212
  Serious: Yes (Hospitalization, Other)
  Sender: FDA-Public Use
  Company Number: JP-WATSON-2014-11162

PATIENT
  Age: 67 Year
  Sex: Male

DRUGS (5)
  1. ZOLEDRONIC ACID (UNKNOWN) [Suspect]
     Indication: PROSTATE CANCER METASTATIC
     Dosage: UNKNOWN
     Route: 042
  2. DOCETAXEL (UNKNOWN) [Suspect]
     Indication: PROSTATE CANCER METASTATIC
     Dosage: 70 MG/M2, UNKNOWN
     Route: 065
     Dates: start: 201105
  3. DEXAMETHASONE (WATSON LABORATORIES) [Suspect]
     Indication: PROSTATE CANCER METASTATIC
     Dosage: UNKNOWN
     Route: 065
  4. CYCLOPHOSPHAMIDE (UNKNOWN) [Suspect]
     Indication: PROSTATE CANCER METASTATIC
     Dosage: UNKNOWN
     Route: 065
  5. ESTRAMUSTINE [Concomitant]
     Indication: PROSTATE CANCER METASTATIC
     Dosage: UNKNOWN
     Route: 065

REACTIONS (14)
  - Osteonecrosis of jaw [Unknown]
  - Pharyngeal abscess [Unknown]
  - Mediastinitis [Unknown]
  - Renal failure acute [Unknown]
  - Respiratory failure [Unknown]
  - Neutropenia [Unknown]
  - Gas gangrene [None]
  - Cellulitis [None]
  - Metastases to liver [None]
  - Hepatic failure [None]
  - Mediastinal abscess [None]
  - Haemoglobin decreased [None]
  - Blood calcium decreased [None]
  - Haematocrit decreased [None]
